FAERS Safety Report 5772543-X (Version None)
Quarter: 2008Q2

REPORT INFORMATION
  Report Type: 
  Country: None (occurrence: None)
  Receive Date: 20080613
  Receipt Date: 20080604
  Transmission Date: 20081010
  Serious: Yes (Hospitalization)
  Sender: FDA-Public Use
  Company Number: US-AMGEN-QUU284662

PATIENT
  Sex: Female

DRUGS (4)
  1. ENBREL [Suspect]
     Indication: PSORIASIS
     Route: 058
     Dates: start: 20030101, end: 20070101
  2. ENBREL [Suspect]
     Indication: PSORIATIC ARTHROPATHY
  3. METHYLDOPA [Concomitant]
  4. BENICAR [Concomitant]
     Dates: start: 20070101

REACTIONS (4)
  - CEPHALO-PELVIC DISPROPORTION [None]
  - FOETAL MALPRESENTATION [None]
  - PSORIASIS [None]
  - PSORIATIC ARTHROPATHY [None]
